FAERS Safety Report 22064647 (Version 1)
Quarter: 2023Q1

REPORT INFORMATION
  Report Type: Report from Study
  Country: US (occurrence: US)
  Receive Date: 20230306
  Receipt Date: 20230306
  Transmission Date: 20230417
  Serious: Yes (Other)
  Sender: FDA-Public Use
  Company Number: US-MYLANLABS-2023M1022872

PATIENT
  Sex: Male

DRUGS (6)
  1. VALGANCICLOVIR [Suspect]
     Active Substance: VALGANCICLOVIR
     Indication: Epstein-Barr virus infection
     Dosage: 900 MILLIGRAM, QD
     Route: 065
  2. VALGANCICLOVIR [Suspect]
     Active Substance: VALGANCICLOVIR
     Indication: Nasopharyngeal cancer metastatic
  3. VALGANCICLOVIR [Suspect]
     Active Substance: VALGANCICLOVIR
     Indication: Nasopharyngeal cancer recurrent
  4. NANATINOSTAT [Suspect]
     Active Substance: NANATINOSTAT
     Indication: Epstein-Barr virus infection
     Dosage: UNK, QD, FOR 4 DAYS/WEEK
     Route: 065
  5. NANATINOSTAT [Suspect]
     Active Substance: NANATINOSTAT
     Indication: Nasopharyngeal cancer metastatic
  6. NANATINOSTAT [Suspect]
     Active Substance: NANATINOSTAT
     Indication: Nasopharyngeal cancer recurrent

REACTIONS (1)
  - Cancer pain [Unknown]
